FAERS Safety Report 9135698 (Version 2)
Quarter: 2013Q1

REPORT INFORMATION
  Report Type: Spontaneous
  Country: GB (occurrence: GB)
  Receive Date: 20130304
  Receipt Date: 20130306
  Transmission Date: 20140127
  Serious: Yes (Other)
  Sender: FDA-Public Use
  Company Number: PHHY2013GB019720

PATIENT
  Age: 64 Year
  Sex: Male

DRUGS (5)
  1. LEVETIRACETAM [Suspect]
     Indication: EPILEPSY
     Dosage: 500 MG, MORNING AND EVENING
  2. PHENYTOIN [Suspect]
     Indication: EPILEPSY
     Dosage: 250 MG, ONCE/SINGLE
  3. MYSOLINE [Suspect]
     Indication: EPILEPSY
     Dosage: 250 MG, QD
  4. CLOBAZAM [Concomitant]
     Dosage: 1 DF, TID
  5. CLOBAZAM [Concomitant]
     Dosage: 1 DF, QD

REACTIONS (5)
  - Toxicity to various agents [Unknown]
  - Hypertension [Unknown]
  - Cardiac disorder [Unknown]
  - Dizziness [Unknown]
  - Headache [Unknown]
